FAERS Safety Report 15950696 (Version 1)
Quarter: 2019Q1

REPORT INFORMATION
  Report Type: Spontaneous
  Country: FR (occurrence: FR)
  Receive Date: 20190211
  Receipt Date: 20190211
  Transmission Date: 20190417
  Serious: Yes (Hospitalization)
  Sender: FDA-Public Use
  Company Number: FR-MYLANLABS-2019M1011404

PATIENT
  Age: 68 Year
  Sex: Male
  Weight: 82 kg

DRUGS (11)
  1. EMEND [Suspect]
     Active Substance: APREPITANT
     Dosage: 80 MILLIGRAM, QD
     Route: 048
     Dates: start: 20180407, end: 20180408
  2. INNOHEP [Suspect]
     Active Substance: TINZAPARIN SODIUM
     Indication: PULMONARY EMBOLISM
     Dosage: UNK
     Route: 058
     Dates: start: 201712, end: 20180421
  3. LEVOFOLINATE DE CALCIUM DAKOTA [Suspect]
     Active Substance: LEVOLEUCOVORIN CALCIUM PENTAHYDRATE
     Indication: CHEMOTHERAPY TOXICITY ATTENUATION
     Dosage: 412 MILLIGRAM, QD
     Route: 042
     Dates: start: 20180406, end: 20180406
  4. ZAMUDOL LP 50 MG, G?LULE ? LIB?RATION PROLONG?E [Suspect]
     Active Substance: TRAMADOL HYDROCHLORIDE
     Indication: PAIN
     Dosage: 50 MILLIGRAM, (AS NECESSARY)
     Route: 048
  5. FLUOROURACILE ACCORD [Suspect]
     Active Substance: FLUOROURACIL
     Dosage: 5000 MILLIGRAM (46 HR)
     Route: 042
     Dates: start: 20180406, end: 20180408
  6. AVASTIN [Suspect]
     Active Substance: BEVACIZUMAB
     Indication: COLON CANCER METASTATIC
     Dosage: 420 MILLIGRAM, QD
     Route: 042
     Dates: start: 20180406, end: 20180406
  7. FLUOROURACILE ACCORD [Suspect]
     Active Substance: FLUOROURACIL
     Indication: COLON CANCER METASTATIC
     Dosage: 420 MILLIGRAM, QD
     Route: 042
     Dates: start: 20180406, end: 20180406
  8. METHYLPREDNISOLONE MYLAN [Suspect]
     Active Substance: METHYLPREDNISOLONE
     Indication: PROPHYLAXIS OF NAUSEA AND VOMITING
     Dosage: 60 MILLIGRAM, QD
     Route: 042
     Dates: start: 20180406, end: 20180406
  9. OXALIPLATINE HOSPIRA [Suspect]
     Active Substance: OXALIPLATIN
     Indication: COLON CANCER METASTATIC
     Dosage: 130 MILLIGRAM, QD
     Route: 042
     Dates: start: 20180406, end: 20180406
  10. EMEND [Suspect]
     Active Substance: APREPITANT
     Indication: PROPHYLAXIS OF NAUSEA AND VOMITING
     Dosage: 125 MILLIGRAM, QD
     Route: 048
     Dates: start: 20180406, end: 20180406
  11. ONDANSETRON ACCORD [Suspect]
     Active Substance: ONDANSETRON
     Indication: PROPHYLAXIS OF NAUSEA AND VOMITING
     Dosage: 8 MILLIGRAM, QD
     Route: 042
     Dates: start: 20180406, end: 20180406

REACTIONS (5)
  - Haematemesis [Recovered/Resolved]
  - Varices oesophageal [Recovered/Resolved]
  - Venoocclusive liver disease [Recovered/Resolved]
  - Portal hypertension [Recovered/Resolved]
  - Rectal haemorrhage [Recovered/Resolved]

NARRATIVE: CASE EVENT DATE: 20180419
